FAERS Safety Report 17056629 (Version 5)
Quarter: 2020Q2

REPORT INFORMATION
  Report Type: Report from Study
  Country: CA (occurrence: CA)
  Receive Date: 20191121
  Receipt Date: 20200408
  Transmission Date: 20200713
  Serious: Yes (Other)
  Sender: FDA-Public Use
  Company Number: CA-B.I. PHARMACEUTICALS,INC./RIDGEFIELD-2019-BI-108030

PATIENT
  Sex: Female

DRUGS (4)
  1. GILOTRIF [Suspect]
     Active Substance: AFATINIB
     Indication: LUNG CANCER METASTATIC
     Route: 048
     Dates: start: 20190920
  2. ELIQUIS [Concomitant]
     Active Substance: APIXABAN
     Indication: ANTICOAGULANT THERAPY
     Route: 065
  3. LISINOPRIL. [Suspect]
     Active Substance: LISINOPRIL
     Indication: PRODUCT USED FOR UNKNOWN INDICATION
     Route: 065
  4. SUCRALFATE. [Suspect]
     Active Substance: SUCRALFATE
     Indication: GASTRITIS
     Route: 065

REACTIONS (19)
  - Gastritis [Not Recovered/Not Resolved]
  - Oral mucosal blistering [Recovering/Resolving]
  - Chapped lips [Not Recovered/Not Resolved]
  - Nasal discomfort [Unknown]
  - Heart rate increased [Not Recovered/Not Resolved]
  - Dyspepsia [Not Recovered/Not Resolved]
  - Muscle spasms [Unknown]
  - Nausea [Unknown]
  - Dry mouth [Recovering/Resolving]
  - Alopecia [Not Recovered/Not Resolved]
  - Ill-defined disorder [Unknown]
  - Scab [Not Recovered/Not Resolved]
  - Swelling [Recovered/Resolved]
  - Hair growth abnormal [Not Recovered/Not Resolved]
  - Hair growth abnormal [Unknown]
  - Dry skin [Not Recovered/Not Resolved]
  - Pain in extremity [Not Recovered/Not Resolved]
  - Diarrhoea [Recovered/Resolved]
  - Glossodynia [Not Recovered/Not Resolved]
